FAERS Safety Report 9271381 (Version 2)
Quarter: 2013Q2

REPORT INFORMATION
  Report Type: Spontaneous
  Country: US (occurrence: US)
  Receive Date: 20130506
  Receipt Date: 20130611
  Transmission Date: 20140414
  Serious: Yes (Hospitalization)
  Sender: FDA-Public Use
  Company Number: US-PFIZER INC-2013140163

PATIENT
  Age: 61 Year
  Sex: Male
  Weight: 113 kg

DRUGS (9)
  1. EFFEXOR XR [Suspect]
     Indication: DEPRESSION
     Dosage: 225 MG IN MORNING AND 37.5 MG IN THE EVENING
     Route: 048
     Dates: start: 2012
  2. TRAZODONE [Suspect]
     Indication: SLEEP DISORDER
     Dosage: 100 MG DAILY
  3. TRAZODONE [Suspect]
     Indication: DEPRESSION
  4. SIMVASTATIN [Concomitant]
     Indication: BLOOD CHOLESTEROL INCREASED
     Dosage: 10 MG DAILY
  5. METOPROLOL [Concomitant]
     Indication: HYPERTENSION
     Dosage: 100 MG, 2X/DAY
  6. LISINOPRIL [Concomitant]
     Indication: HYPERTENSION
     Dosage: 10 MG DAILY
  7. FUROSEMIDE [Concomitant]
     Indication: HYPERTENSION
     Dosage: 20 MG DAILY
  8. ASPIRIN [Concomitant]
     Indication: CARDIAC DISORDER
     Dosage: 81 MG DAILY
  9. COUMADIN [Concomitant]
     Indication: ANTICOAGULANT THERAPY
     Dosage: 7 MG DAILY

REACTIONS (2)
  - Cardiac failure congestive [Unknown]
  - Drug ineffective [Unknown]
